FAERS Safety Report 15569960 (Version 3)
Quarter: 2019Q3

REPORT INFORMATION
  Report Type: Report from Study
  Country: US (occurrence: US)
  Receive Date: 20181031
  Receipt Date: 20190918
  Transmission Date: 20191004
  Serious: Yes (Other)
  Sender: FDA-Public Use
  Company Number: PHEH2018US045658

PATIENT
  Sex: Female

DRUGS (1)
  1. ENTRESTO [Suspect]
     Active Substance: SACUBITRIL\VALSARTAN
     Indication: PRODUCT USED FOR UNKNOWN INDICATION
     Dosage: 50 MG (24MG SACUBITRIL/ 26MG VALSARTAN), BID
     Route: 048

REACTIONS (5)
  - Weight fluctuation [Unknown]
  - Pain in extremity [Unknown]
  - Device extrusion [Unknown]
  - Oedema [Unknown]
  - Ejection fraction decreased [Recovering/Resolving]
